FAERS Safety Report 9926067 (Version 2)
Quarter: 2014Q1

REPORT INFORMATION
  Report Type: Spontaneous
  Country: NL (occurrence: NL)
  Receive Date: 20140226
  Receipt Date: 20140303
  Transmission Date: 20141002
  Serious: Yes (Hospitalization)
  Sender: FDA-Public Use
  Company Number: NL-B.I. PHARMACEUTICALS,INC./RIDGEFIELD-2014-BI-07518NL

PATIENT
  Age: 68 Year
  Sex: Female

DRUGS (4)
  1. PRADAXA [Suspect]
     Indication: ATRIAL FIBRILLATION
     Dosage: 600 MG
     Route: 065
  2. SIMVASTATINE [Concomitant]
     Route: 065
     Dates: start: 20110101
  3. SIMVASTATINE [Concomitant]
  4. NON SPECIFIED VITAMIN [Concomitant]
     Route: 065
     Dates: start: 20110101

REACTIONS (1)
  - Retinal vein thrombosis [Not Recovered/Not Resolved]
